FAERS Safety Report 11905843 (Version 2)
Quarter: 2016Q1

REPORT INFORMATION
  Report Type: Spontaneous
  Country: DE (occurrence: DE)
  Receive Date: 20160111
  Receipt Date: 20160128
  Transmission Date: 20160526
  Serious: Yes (Hospitalization)
  Sender: FDA-Public Use
  Company Number: DE-AMGEN-DEUSP2016001351

PATIENT
  Age: 65 Year
  Sex: Male

DRUGS (13)
  1. CYCLOPHOSPHAMIDE. [Suspect]
     Active Substance: CYCLOPHOSPHAMIDE
     Indication: B-CELL LYMPHOMA
     Dosage: 1650 MG, ONCE/CYCLE FOR 1 DAY(S)
     Route: 042
     Dates: start: 20151218, end: 20151218
  2. VINCRISTINE [Suspect]
     Active Substance: VINCRISTINE
     Indication: B-CELL LYMPHOMA
     Dosage: 2 MG, ONCE/CYCLE FOR 1 DAY(S)
     Route: 042
     Dates: start: 20151218, end: 20151218
  3. PREDNISOLONE. [Suspect]
     Active Substance: PREDNISOLONE
     Indication: B-CELL LYMPHOMA
     Dosage: 100 MG, 6 TIMES/CYCLE, 1X I.V. FOR 6 DAY(S)
     Route: 042
     Dates: start: 20151217, end: 20151222
  4. LEUCOVORIN                         /00566701/ [Suspect]
     Active Substance: LEUCOVORIN
     Indication: B-CELL LYMPHOMA
     Dosage: 120 MG, 1 CYCLE FOR 2 DAY(S)
     Route: 042
     Dates: start: 20151127, end: 20151128
  5. PEGFILGRASTIM [Suspect]
     Active Substance: PEGFILGRASTIM
     Indication: B-CELL LYMPHOMA
     Dosage: 6 MG, DAY 4 OF EACH CYCLE FOR 1 DAY(S)
     Route: 058
     Dates: start: 20151221, end: 20151221
  6. METHOTREXATE (METHOTREXATE SODIUM) [Suspect]
     Active Substance: METHOTREXATE SODIUM
     Indication: B-CELL LYMPHOMA
     Dosage: 3228 MG, 1 CYCLE FOR 2 DAY(S)
     Route: 042
     Dates: start: 20151126, end: 20151127
  7. ACICLOVIR [Concomitant]
     Active Substance: ACYCLOVIR
     Indication: PROPHYLAXIS
     Dosage: 400 MG, 4 TIMES A DAY(S)
     Route: 048
     Dates: start: 201511
  8. DOXORUBICIN [Suspect]
     Active Substance: DOXORUBICIN
     Indication: B-CELL LYMPHOMA
     Dosage: 110 MG, ONCE/CYCLE FOR 1 DAY(S)
     Route: 042
     Dates: start: 20151218, end: 20151218
  9. PREDNISOLONE. [Suspect]
     Active Substance: PREDNISOLONE
     Dosage: 100 MG, 6 TIMES/CYCLE, 1X P.O. FOR 6 DAY(S)
     Route: 048
     Dates: start: 20151217, end: 20151222
  10. ALLOPURINOL. [Concomitant]
     Active Substance: ALLOPURINOL
     Indication: PROPHYLAXIS
     Dosage: 300 MG, 1 TIMES A DAY(S)
     Route: 048
     Dates: start: 201511
  11. CIPROFLOXACIN. [Concomitant]
     Active Substance: CIPROFLOXACIN
     Indication: PROPHYLAXIS
     Dosage: 500 MG, 2 TIMES A DAY(S)
     Route: 048
     Dates: start: 201511
  12. COLECALCIFEROL [Concomitant]
     Active Substance: CHOLECALCIFEROL
     Indication: VITAMIN SUPPLEMENTATION
     Dosage: 20000 IU, 1
     Route: 048
     Dates: start: 20151118
  13. RITUXIMAB [Suspect]
     Active Substance: RITUXIMAB
     Indication: B-CELL LYMPHOMA
     Dosage: 810 MG, ONCE/CYCLE FOR 1 DAY(S)
     Route: 042
     Dates: start: 20151217, end: 20151217

REACTIONS (1)
  - Thrombosis [Recovered/Resolved]

NARRATIVE: CASE EVENT DATE: 20151229
